FAERS Safety Report 24311971 (Version 1)
Quarter: 2024Q3

REPORT INFORMATION
  Report Type: Report from Study
  Country: US (occurrence: US)
  Receive Date: 20240912
  Receipt Date: 20240912
  Transmission Date: 20241017
  Serious: No
  Sender: AGIOS PHARMACEUTICALS
  Company Number: US-AGIOS-2409US03878

PATIENT
  Sex: Female

DRUGS (1)
  1. MITAPIVAT [Suspect]
     Active Substance: MITAPIVAT
     Indication: Thalassaemia beta
     Dosage: 5 MILLIGRAM, BID
     Route: 048
     Dates: start: 20240712

REACTIONS (4)
  - Fall [Unknown]
  - Upper limb fracture [Unknown]
  - Product dose omission issue [Unknown]
  - Off label use [Unknown]
